FAERS Safety Report 19407355 (Version 1)
Quarter: 2021Q2

REPORT INFORMATION
  Report Type: Spontaneous
  Country: GB (occurrence: GB)
  Receive Date: 20210611
  Receipt Date: 20210611
  Transmission Date: 20210717
  Serious: Yes (Other)
  Sender: FDA-Public Use
  Company Number: GB-ORGANON-O2106GBR000979

PATIENT
  Sex: Female

DRUGS (1)
  1. ETONOGESTREL IMPLANT? UNKNOWN [Suspect]
     Active Substance: ETONOGESTREL
     Dosage: 1 IMPLANT
     Route: 059
     Dates: start: 20190718

REACTIONS (3)
  - Menstruation irregular [Unknown]
  - Unintended pregnancy [Unknown]
  - Pregnancy with implant contraceptive [Unknown]
